FAERS Safety Report 5402111-0 (Version None)
Quarter: 2007Q3

REPORT INFORMATION
  Report Type: 
  Country: None (occurrence: None)
  Receive Date: 20070801
  Receipt Date: 20070723
  Transmission Date: 20080115
  Serious: Yes (Hospitalization, Other)
  Sender: FDA-Public Use
  Company Number: HQWYE538603JUL06

PATIENT
  Sex: Male
  Weight: 70.82 kg

DRUGS (34)
  1. EFFEXOR XR [Suspect]
     Indication: DEPRESSION
     Route: 048
     Dates: start: 20010326, end: 20020919
  2. EFFEXOR XR [Suspect]
     Indication: ANXIETY
     Route: 048
     Dates: start: 20020920, end: 20030220
  3. EFFEXOR XR [Suspect]
     Route: 048
     Dates: start: 20030227, end: 20030930
  4. EFFEXOR XR [Suspect]
     Route: 048
     Dates: start: 20031001, end: 20040329
  5. EFFEXOR XR [Suspect]
     Route: 048
     Dates: start: 20040330, end: 20041012
  6. EFFEXOR XR [Suspect]
     Route: 048
     Dates: start: 20041013
  7. WELLBUTRIN XL [Suspect]
     Dosage: 150 MG FREQUENCY UNSPECIFIED
     Dates: start: 20040324, end: 20040501
  8. DOXYCYCLINE HYCLATE [Concomitant]
     Dosage: 1000 MG TAB FREQUENCY UNSPECIFIED
     Route: 048
     Dates: start: 20010612, end: 20010101
  9. RHINOCORT [Concomitant]
     Dosage: 2 SPRAYS EACH EACH NOSTRIL ONCE DAILY
     Route: 055
     Dates: start: 20000705
  10. AMOXICILLIN [Concomitant]
     Route: 048
     Dates: start: 20011106, end: 20011115
  11. AMOXICILLIN [Concomitant]
     Route: 048
     Dates: start: 20011213, end: 20011222
  12. AMOXICILLIN [Concomitant]
     Route: 048
     Dates: start: 20020117, end: 20020126
  13. BUPROPION HCL [Concomitant]
     Dosage: 150 MG FREQUENCY UNSPECIFIED
     Route: 048
     Dates: start: 20040501
  14. PREDNISONE [Concomitant]
     Route: 048
     Dates: start: 20011213, end: 20011218
  15. PREDNISONE [Concomitant]
     Dosage: 20 MG TAB FREQUENCY UNSPECIFIED
     Route: 048
     Dates: start: 20030825, end: 20030101
  16. PREDNISONE [Concomitant]
     Dosage: 20 MG TAB FREQUENCYUNSPECIFIED
     Route: 048
     Dates: start: 20030918, end: 20030101
  17. PREDNISONE [Concomitant]
     Dosage: 20 MG TAB FREQUENCY UNSPECIFIED
     Route: 048
     Dates: start: 20050321, end: 20050101
  18. ALPRAZOLAM [Concomitant]
     Indication: ANXIETY
     Dosage: 0.5 MG EVERY 6 HOURS AS NEEDED
     Route: 048
     Dates: start: 20010319
  19. VIAGRA [Concomitant]
     Dosage: 50 MG TAB FREQUENCY UNSPECIFIED
     Route: 048
     Dates: start: 20030807, end: 20060119
  20. VIAGRA [Concomitant]
     Dosage: 100 MG TAB FREQUENCY UNSPECIFIED
     Dates: start: 20060120
  21. LEVAQUIN [Concomitant]
     Dosage: 500 MG TAB FREQUENCY UNSPECIFIED
     Dates: start: 20031201, end: 20031201
  22. AVELOX [Concomitant]
     Dosage: 400 MG TABS FREQUENCY UNSPECIFIED
     Route: 048
     Dates: start: 20040510, end: 20040523
  23. ZITHROMAX [Concomitant]
     Dosage: 500 MG TABS FREQUENCY UNSPECIFIED
     Route: 048
     Dates: start: 20050321, end: 20050323
  24. ZITHROMAX [Concomitant]
     Dosage: 250 MG FREQUENCY UNSPECIFIED
     Dates: start: 20050503, end: 20050507
  25. ZITHROMAX [Concomitant]
     Dosage: 250 MG FREQUENCY UNSPECIFIED
     Dates: start: 20060815, end: 20060801
  26. CAMPRAL [Concomitant]
     Dosage: 333 MG 2 PO TID
     Dates: start: 20051109, end: 20051201
  27. CAMPRAL [Concomitant]
     Dosage: 1 PO TID
     Dates: start: 20051201
  28. CAMPRAL [Concomitant]
     Dosage: 333 MG, 2 TID
     Dates: start: 20060101
  29. LEXAPRO [Concomitant]
     Dosage: 10 MG TAB FREQUENCY UNSPECIFIED
     Dates: start: 20060120
  30. AMOXICILLIN + CLAVULANATE POTASSIUM [Concomitant]
     Dosage: 875/125 TAB FREQUENCY UNSPECIFIED
     Dates: start: 20060711, end: 20060701
  31. AMOXICILLIN + CLAVULANATE POTASSIUM [Concomitant]
     Dosage: 875-125 TAB FREQUENCY UNSPECIFIED
     Dates: start: 20070118, end: 20070101
  32. LORAZEPAM [Concomitant]
     Dosage: 1 MG TAB FREQUENCY UNSPECIFIED
     Dates: start: 20061107
  33. MOXIFLOXACIN HCL [Concomitant]
  34. NASONEX [Concomitant]
     Dosage: 1 SPRAY EACH NARE EVERY 12 HOURS
     Route: 045

REACTIONS (42)
  - ABNORMAL BEHAVIOUR [None]
  - AGITATION [None]
  - ALCOHOL USE [None]
  - ALCOHOLISM [None]
  - ANHEDONIA [None]
  - ANOREXIA [None]
  - ANXIETY [None]
  - BRAIN DAMAGE [None]
  - CHEST PAIN [None]
  - COMPULSIONS [None]
  - CONDITION AGGRAVATED [None]
  - CONVULSION [None]
  - CRYING [None]
  - DEPRESSION [None]
  - DISTURBANCE IN ATTENTION [None]
  - DIZZINESS [None]
  - DRUG DEPENDENCE [None]
  - DRUG WITHDRAWAL SYNDROME [None]
  - DYSSTASIA [None]
  - EMOTIONAL DISTRESS [None]
  - ERECTILE DYSFUNCTION [None]
  - FAECAL INCONTINENCE [None]
  - FLIGHT OF IDEAS [None]
  - HYPERHIDROSIS [None]
  - MALAISE [None]
  - MANIA [None]
  - MENTAL IMPAIRMENT [None]
  - MOOD ALTERED [None]
  - MOOD SWINGS [None]
  - NIGHT SWEATS [None]
  - NIGHTMARE [None]
  - PARAESTHESIA [None]
  - PSYCHOTIC DISORDER [None]
  - SLEEP DISORDER [None]
  - SUICIDAL IDEATION [None]
  - SUICIDE ATTEMPT [None]
  - TENSION [None]
  - TINNITUS [None]
  - UNEVALUABLE EVENT [None]
  - URINARY INCONTINENCE [None]
  - VOMITING [None]
  - WEIGHT DECREASED [None]
